FAERS Safety Report 7864419-9 (Version None)
Quarter: 2011Q4

REPORT INFORMATION
  Report Type: 
  Country: None (occurrence: None)
  Receive Date: 20111028
  Receipt Date: 20111021
  Transmission Date: 20120403
  Serious: Yes (Hospitalization)
  Sender: FDA-Public Use
  Company Number: PHHY2011US68066

PATIENT
  Sex: Female
  Weight: 54 kg

DRUGS (1)
  1. EXJADE [Suspect]
     Indication: IRON METABOLISM DISORDER
     Dosage: 3000 MG, DAILY
     Route: 048
     Dates: start: 20100414

REACTIONS (3)
  - CEREBROVASCULAR ACCIDENT [None]
  - SICKLE CELL ANAEMIA WITH CRISIS [None]
  - HYPOAESTHESIA [None]
